FAERS Safety Report 21416822 (Version 1)
Quarter: 2022Q4

REPORT INFORMATION
  Report Type: Spontaneous
  Country: IL (occurrence: IL)
  Receive Date: 20221006
  Receipt Date: 20221006
  Transmission Date: 20230113
  Serious: Yes (Hospitalization, Other)
  Sender: FDA-Public Use
  Company Number: IL-002147023-NVSC2022IL005640

PATIENT
  Age: 50 Year
  Sex: Female

DRUGS (1)
  1. DICLOFENAC [Suspect]
     Active Substance: DICLOFENAC
     Indication: Myalgia
     Dosage: UNK, (DICOFENAC PILLS)
     Route: 065

REACTIONS (4)
  - Autoimmune haemolytic anaemia [Unknown]
  - Hypothyroidism [Unknown]
  - Jaundice [Unknown]
  - Dyspnoea [Unknown]

NARRATIVE: CASE EVENT DATE: 20210201
